FAERS Safety Report 18311475 (Version 1)
Quarter: 2020Q3

REPORT INFORMATION
  Report Type: Spontaneous
  Country: US (occurrence: US)
  Receive Date: 20200924
  Receipt Date: 20200924
  Transmission Date: 20201103
  Serious: Yes (Hospitalization)
  Sender: FDA-Public Use
  Company Number: None

PATIENT
  Age: 32 Year
  Sex: Male

DRUGS (6)
  1. COSENTYX [Suspect]
     Active Substance: SECUKINUMAB
     Indication: PSORIASIS
     Dosage: ?          OTHER FREQUENCY:EVERY 4 WEEKS;?
     Route: 058
     Dates: start: 20190313
  2. OXYCODONE [Concomitant]
     Active Substance: OXYCODONE
  3. FAMOTIDINE. [Concomitant]
     Active Substance: FAMOTIDINE
  4. LISINOPRIL. [Concomitant]
     Active Substance: LISINOPRIL
  5. FOLIC ACID. [Concomitant]
     Active Substance: FOLIC ACID
  6. GABAPENTIN. [Concomitant]
     Active Substance: GABAPENTIN

REACTIONS (1)
  - Pancreatitis [None]

NARRATIVE: CASE EVENT DATE: 20200906
